FAERS Safety Report 6145191 (Version 11)
Quarter: 2013Q3

REPORT INFORMATION
  Report Type: Spontaneous
  Country: US (occurrence: US)
  Receive Date: 20061011
  Receipt Date: 20130805
  Transmission Date: 20140515
  Serious: Yes (Death, Hospitalization, Other)
  Sender: FDA-Public Use
  Company Number: PHEH2006US12307

PATIENT
  Sex: Female
  Weight: 68.93 kg

DRUGS (25)
  1. ZOMETA [Suspect]
     Indication: PLASMA CELL MYELOMA
  2. ZOMETA [Suspect]
     Indication: BONE LOSS
  3. ZOMETA [Suspect]
     Indication: BONE CANCER
  4. FOSAMAX [Suspect]
  5. OXYCODONE [Concomitant]
  6. MEPERIDINE [Concomitant]
  7. SIMVASTATIN [Concomitant]
  8. INDOMETHACIN [Concomitant]
  9. ACETAMINOPHEN [Concomitant]
  10. TYLENOL [Concomitant]
  11. ASPIRIN ^BAYER^ [Concomitant]
     Dosage: 325 MG, BID
  12. COLACE [Concomitant]
  13. FLONASE [Concomitant]
  14. LEVAQUIN [Concomitant]
  15. GUAIFED [Concomitant]
     Route: 048
  16. KLOR-CON [Concomitant]
     Dosage: 20 MEQ, BID
     Route: 048
  17. NOVOLOG [Concomitant]
     Route: 058
  18. REGLAN                                  /USA/ [Concomitant]
     Dosage: 10 MG, TID
     Route: 048
  19. THEO-DUR [Concomitant]
     Dosage: 300 MG, BID
     Route: 048
  20. ZAROXOLYN [Concomitant]
     Dosage: 5 MG, BID
     Route: 048
  21. PERDIEM [Concomitant]
     Dosage: 2 DF, QHS
     Route: 048
  22. PREVACID [Concomitant]
     Dosage: 30 MG, BID
     Route: 048
  23. PROMETHAZINE [Concomitant]
  24. ARTHROTEC [Concomitant]
  25. DARVOCET-N [Concomitant]

REACTIONS (82)
  - Cardiac failure congestive [Fatal]
  - Pneumonia [Unknown]
  - Abdominal pain [Recovering/Resolving]
  - Osteonecrosis of jaw [Unknown]
  - Pain [Unknown]
  - Injury [Unknown]
  - Emotional distress [Unknown]
  - Decreased interest [Unknown]
  - Spinal osteoarthritis [Unknown]
  - Deformity [Unknown]
  - Vision blurred [Unknown]
  - Pain in jaw [Unknown]
  - Ileus [Unknown]
  - Drug eruption [Unknown]
  - Psoriasis [Unknown]
  - Metabolic encephalopathy [Recovered/Resolved]
  - Infection [Unknown]
  - Hypertension [Unknown]
  - Atrial fibrillation [Unknown]
  - Atrial flutter [Unknown]
  - Hyperlipidaemia [Unknown]
  - Azotaemia [Recovered/Resolved]
  - Constipation [Unknown]
  - Emphysema [Unknown]
  - Anaemia [Unknown]
  - Cataract [Unknown]
  - Chronic obstructive pulmonary disease [Unknown]
  - Ulcer [Unknown]
  - Confusional state [Unknown]
  - Urinary tract infection [Unknown]
  - Renal failure [Unknown]
  - Failure to thrive [Unknown]
  - Umbilical hernia, obstructive [Unknown]
  - Asthma [Unknown]
  - Sinus bradycardia [Unknown]
  - Bundle branch block left [Unknown]
  - Left ventricular hypertrophy [Unknown]
  - Type 1 diabetes mellitus [Unknown]
  - Decubitus ulcer [Unknown]
  - Sepsis [Unknown]
  - Depression [Unknown]
  - Urosepsis [Unknown]
  - Delirium [Unknown]
  - Amnesia [Unknown]
  - Osteopenia [Unknown]
  - Asthenia [Unknown]
  - Wound [Unknown]
  - Restlessness [Unknown]
  - Neuropathy peripheral [Unknown]
  - Paronychia [Unknown]
  - Onycholysis [Unknown]
  - Immunosuppression [Unknown]
  - Rheumatoid arthritis [Unknown]
  - Intestinal obstruction [Unknown]
  - Arthralgia [Unknown]
  - Cellulitis [Unknown]
  - Gait disturbance [Unknown]
  - Immobile [Unknown]
  - Hypokalaemia [Unknown]
  - Joint swelling [Unknown]
  - Hypercalcaemia [Unknown]
  - Oedema peripheral [Unknown]
  - Dyspnoea [Unknown]
  - Stomatitis [Unknown]
  - Papule [Unknown]
  - Cystitis [Unknown]
  - Headache [Unknown]
  - Rash [Unknown]
  - Hypermagnesaemia [Unknown]
  - Hyponatraemia [Unknown]
  - Leukocytosis [Unknown]
  - Skin hyperpigmentation [Unknown]
  - Anxiety [Unknown]
  - Skin disorder [Unknown]
  - Gastroenteritis [Unknown]
  - Ingrowing nail [Unknown]
  - Nausea [Unknown]
  - Vomiting [Unknown]
  - Malaise [Unknown]
  - Fatigue [Unknown]
  - Myalgia [Unknown]
  - Faecaloma [Unknown]
